FAERS Safety Report 4356675-9 (Version None)
Quarter: 2004Q2

REPORT INFORMATION
  Report Type: 
  Country: None (occurrence: None)
  Receive Date: 20040507
  Receipt Date: 20040426
  Transmission Date: 20050107
  Serious: Yes (Hospitalization)
  Sender: FDA-Public Use
  Company Number: CEL-2004-00745-ROC

PATIENT
  Age: 76 Year
  Sex: Male

DRUGS (3)
  1. ZAROXOLYN [Suspect]
     Indication: CARDIAC FAILURE CONGESTIVE
     Dosage: 5MG QD PO
     Route: 048
  2. ZAROXOLYN [Suspect]
     Indication: PULMONARY OEDEMA
     Dosage: 5MG QD PO
     Route: 048
  3. LASIX [Suspect]
     Dosage: 20 MG EVERY TWO DAYS/40 MG EVERY TWO DAYS/20 MG QD, PO
     Route: 048

REACTIONS (2)
  - ANAEMIA [None]
  - NEUTROPENIA [None]
